FAERS Safety Report 4880916-2 (Version None)
Quarter: 2005Q4

REPORT INFORMATION
  Report Type: 
  Country: None (occurrence: None)
  Receive Date: 20051223
  Receipt Date: 20051025
  Transmission Date: 20060501
  Serious: No
  Sender: FDA-Public Use
  Company Number: 05P-163-0315148-00

PATIENT
  Age: 57 Year
  Sex: Male
  Weight: 91 kg

DRUGS (7)
  1. HUMIRA [Suspect]
     Indication: ANKYLOSING SPONDYLITIS
     Dosage: 40 MG, 1 IN 2 WK, SUBCUTANEOUS
     Route: 058
     Dates: start: 20050501
  2. LACTULOSE [Concomitant]
  3. BISACODYL [Concomitant]
  4. VICODIN [Concomitant]
  5. MORPHINE SULFATE [Concomitant]
  6. INTERFERON [Concomitant]
  7. RIBAVIRIN [Concomitant]

REACTIONS (5)
  - CONTUSION [None]
  - FALL [None]
  - HUMERUS FRACTURE [None]
  - NEPHROLITHIASIS [None]
  - SKIN LACERATION [None]
